FAERS Safety Report 7711276-7 (Version None)
Quarter: 2011Q3

REPORT INFORMATION
  Report Type: 
  Country: None (occurrence: None)
  Receive Date: 20110826
  Receipt Date: 20101214
  Transmission Date: 20111222
  Serious: No
  Sender: FDA-Public Use
  Company Number: US-BAYER-2010-008445

PATIENT
  Age: 37 Year
  Sex: Female

DRUGS (1)
  1. MIRENA [Suspect]
     Indication: CONTRACEPTION
     Dosage: 20 MCG/24HR, UNK
     Route: 015
     Dates: start: 20080801, end: 20101123

REACTIONS (3)
  - VAGINAL HAEMORRHAGE [None]
  - AMENORRHOEA [None]
  - COMPLICATION OF DEVICE REMOVAL [None]
